FAERS Safety Report 6383564-0 (Version None)
Quarter: 2009Q3

REPORT INFORMATION
  Report Type: 
  Country: None (occurrence: None)
  Receive Date: 20090929
  Receipt Date: 20090929
  Transmission Date: 20100115
  Serious: Yes (Hospitalization)
  Sender: FDA-Public Use
  Company Number: None

PATIENT
  Age: 50 Year
  Sex: Female
  Weight: 65.45 kg

DRUGS (1)
  1. FERRIC NA GLUCONATE [Suspect]
     Dosage: 250 MG ONCE IV
     Route: 042
     Dates: start: 20090305, end: 20090305

REACTIONS (2)
  - ANAPHYLACTIC REACTION [None]
  - HYPOTENSION [None]
